FAERS Safety Report 6135978-1 (Version None)
Quarter: 2009Q1

REPORT INFORMATION
  Report Type: 
  Country: None (occurrence: None)
  Receive Date: 20090329
  Receipt Date: 20080924
  Transmission Date: 20090719
  Serious: No
  Sender: FDA-Public Use
  Company Number: US-BAUSCH-2008BL004135

PATIENT
  Age: 80 Year
  Sex: Female

DRUGS (1)
  1. LOTEMAX [Suspect]
     Indication: POSTOPERATIVE CARE
     Route: 047
     Dates: start: 20080801

REACTIONS (2)
  - NASAL CONGESTION [None]
  - RHINORRHOEA [None]
